FAERS Safety Report 8812203 (Version 1)
Quarter: 2012Q4

REPORT INFORMATION
  Report Type: 
  Country: US (occurrence: US)
  Receive Date: 20120927
  Receipt Date: 20120927
  Transmission Date: 20130627
  Serious: Yes (Other)
  Sender: FDA-Public Use
  Company Number: US-ROCHE-1126435

PATIENT
  Sex: Female

DRUGS (10)
  1. AVASTIN [Suspect]
     Indication: COLON CANCER
     Route: 065
     Dates: start: 200603
  2. AVASTIN [Suspect]
     Route: 065
     Dates: start: 200701
  3. XELODA [Suspect]
     Indication: PRODUCT USED FOR UNKNOWN INDICATION
     Route: 065
     Dates: start: 200603
  4. XELODA [Suspect]
     Route: 065
     Dates: start: 200701
  5. XELODA [Suspect]
     Route: 065
     Dates: start: 200809
  6. 5-FU [Concomitant]
  7. LEUCOVORIN [Concomitant]
  8. CPT-11 [Concomitant]
     Route: 065
     Dates: start: 200708
  9. ERBITUX [Concomitant]
     Route: 065
     Dates: start: 200708
  10. VECTIBIX [Concomitant]
     Route: 065
     Dates: start: 200805

REACTIONS (2)
  - Disease progression [Unknown]
  - Carcinoembryonic antigen increased [Unknown]
